FAERS Safety Report 15641427 (Version 2)
Quarter: 2018Q4

REPORT INFORMATION
  Report Type: Spontaneous
  Country: JP (occurrence: JP)
  Receive Date: 20181120
  Receipt Date: 20181121
  Transmission Date: 20190205
  Serious: Yes (Other)
  Sender: FDA-Public Use
  Company Number: JP-JNJFOC-20181103326

PATIENT
  Age: 6 Year
  Sex: Male

DRUGS (7)
  1. ZYRTEC [Suspect]
     Active Substance: CETIRIZINE HYDROCHLORIDE
     Route: 048
  2. ALESION [Suspect]
     Active Substance: EPINASTINE HYDROCHLORIDE
     Indication: HYPERSENSITIVITY
     Dosage: PRESCRIBED FOR 21 DAYS
     Route: 048
     Dates: start: 20180922
  3. ALESION [Suspect]
     Active Substance: EPINASTINE HYDROCHLORIDE
     Indication: ALOPECIA AREATA
     Dosage: PRESCRIBED FOR 21 DAYS
     Route: 048
     Dates: start: 20180922
  4. ZADITEN [Suspect]
     Active Substance: KETOTIFEN FUMARATE
     Indication: NASOPHARYNGITIS
     Dosage: FOR 5 DAYS
     Route: 048
     Dates: start: 20180928
  5. ALESION [Suspect]
     Active Substance: EPINASTINE HYDROCHLORIDE
     Indication: ALOPECIA AREATA
     Route: 048
     Dates: start: 201808
  6. ZYRTEC [Suspect]
     Active Substance: CETIRIZINE HYDROCHLORIDE
     Indication: FOOD ALLERGY
     Dosage: OFF LABEL USE FOR DOSE. OFF LABEL USE OTHER.
     Route: 048
     Dates: start: 20180302, end: 20180430
  7. ALESION [Suspect]
     Active Substance: EPINASTINE HYDROCHLORIDE
     Indication: HYPERSENSITIVITY
     Route: 048
     Dates: start: 201808

REACTIONS (2)
  - Alopecia areata [Not Recovered/Not Resolved]
  - Off label use [Unknown]

NARRATIVE: CASE EVENT DATE: 20180302
